FAERS Safety Report 6146643-9 (Version None)
Quarter: 2009Q2

REPORT INFORMATION
  Report Type: 
  Country: None (occurrence: None)
  Receive Date: 20090403
  Receipt Date: 20090320
  Transmission Date: 20091009
  Serious: Yes (Life-Threatening, Hospitalization)
  Sender: FDA-Public Use
  Company Number: 2009S1005096

PATIENT
  Age: 68 Year
  Sex: Female
  Weight: 129.003 kg

DRUGS (7)
  1. EXEMESTANE [Suspect]
     Indication: BREAST CANCER
     Dosage: 25 MG; DAILY
     Dates: start: 20060914
  2. DETROL LA [Suspect]
     Dosage: 4 MG; DAILY
  3. CALCIUM CARBONATE (1250 MG) [Suspect]
     Dosage: 1250 MG;TWICE A DAY;ORAL
     Route: 048
  4. LOVASTATIN [Suspect]
     Dosage: 20 MG; DAILY
  5. ZETIA [Suspect]
     Dosage: 10 MG; DAILY
  6. ASPIRIN [Concomitant]
  7. VITAMIN D [Concomitant]

REACTIONS (5)
  - ARTHRALGIA [None]
  - DYSPNOEA [None]
  - PAIN IN EXTREMITY [None]
  - PULMONARY EMBOLISM [None]
  - THROMBOSIS [None]
